FAERS Safety Report 18484029 (Version 3)
Quarter: 2021Q1

REPORT INFORMATION
  Report Type: Report from Study
  Country: None (occurrence: CO)
  Receive Date: 20201109
  Receipt Date: 20210108
  Transmission Date: 20210419
  Serious: Yes (Other)
  Sender: FDA-Public Use
  Company Number: CO-ABBVIE-20K-036-3642271-00

PATIENT
  Age: 63 Year
  Sex: Male
  Weight: 73 kg

DRUGS (3)
  1. HUMIRA [Suspect]
     Active Substance: ADALIMUMAB
     Indication: PSORIASIS
     Route: 058
     Dates: end: 20200630
  2. HUMIRA [Suspect]
     Active Substance: ADALIMUMAB
     Route: 058
     Dates: end: 20200630
  3. HUMIRA [Suspect]
     Active Substance: ADALIMUMAB
     Indication: PSORIASIS
     Route: 058
     Dates: start: 20130215

REACTIONS (7)
  - Renal disorder [Not Recovered/Not Resolved]
  - Urine abnormality [Not Recovered/Not Resolved]
  - Psoriasis [Recovering/Resolving]
  - Back pain [Not Recovered/Not Resolved]
  - Renal cyst [Not Recovered/Not Resolved]
  - Vision blurred [Not Recovered/Not Resolved]
  - Chromaturia [Unknown]

NARRATIVE: CASE EVENT DATE: 202009
